FAERS Safety Report 10946748 (Version 1)
Quarter: 2015Q1

REPORT INFORMATION
  Report Type: Report from Study
  Country: JP (occurrence: JP)
  Receive Date: 20150323
  Receipt Date: 20150323
  Transmission Date: 20150721
  Serious: Yes (Life-Threatening)
  Sender: FDA-Public Use
  Company Number: JP-BAYER-2015-047858

PATIENT
  Age: 75 Year
  Sex: Female
  Weight: 41 kg

DRUGS (4)
  1. AMLODIPINE [Concomitant]
     Active Substance: AMLODIPINE BESYLATE
     Dosage: DAILY DOSE 2.5 MG
     Route: 048
  2. NEXAVAR [Suspect]
     Active Substance: SORAFENIB
     Indication: PAPILLARY THYROID CANCER
     Dosage: 400 MG, QD
     Route: 048
     Dates: start: 20141118, end: 20150215
  3. THYRADIN S [Concomitant]
     Active Substance: LEVOTHYROXINE SODIUM
     Indication: PAPILLARY THYROID CANCER
     Dosage: DAILY DOSE 150 ?G
     Route: 048
     Dates: start: 20030724
  4. ASPARA-CA [Concomitant]
     Active Substance: CALCIUM ASPARTATE
     Dosage: DAILY DOSE 1800 MG
     Route: 048
     Dates: start: 20030724

REACTIONS (1)
  - Platelet count decreased [Recovered/Resolved]

NARRATIVE: CASE EVENT DATE: 20150202
